FAERS Safety Report 13429172 (Version 4)
Quarter: 2018Q3

REPORT INFORMATION
  Report Type: Spontaneous
  Country: IT (occurrence: IT)
  Receive Date: 20170411
  Receipt Date: 20180703
  Transmission Date: 20181010
  Serious: Yes (Hospitalization)
  Sender: FDA-Public Use
  Company Number: ALCN2017IT002506

PATIENT
  Age: 19 Year
  Sex: Female
  Weight: 63 kg

DRUGS (5)
  1. MONTELUKAST ACCORD [Suspect]
     Active Substance: MONTELUKAST\MONTELUKAST SODIUM
     Indication: INTENTIONAL SELF-INJURY
     Dosage: 4 DF, QW
     Route: 048
  2. TACHIPIRINA [Suspect]
     Active Substance: ACETAMINOPHEN
     Indication: INTENTIONAL SELF-INJURY
     Dosage: 8 DF, (TOTAL)
     Route: 048
  3. KETOTIFEN [Suspect]
     Active Substance: KETOTIFEN
     Indication: INTENTIONAL SELF-INJURY
     Dosage: 4 DF, (TOTAL)
     Route: 048
  4. METFORMIN [Suspect]
     Active Substance: METFORMIN HYDROCHLORIDE
     Indication: INTENTIONAL SELF-INJURY
     Dosage: 850 MG, (TOTAL)
     Route: 048
  5. EXPOSE [Suspect]
     Active Substance: EPERISONE HYDROCHLORIDE
     Indication: INTENTIONAL SELF-INJURY
     Dosage: 4 DF, (TOTAL)
     Route: 065

REACTIONS (4)
  - Vomiting [Unknown]
  - Drug abuse [Unknown]
  - Overdose [Unknown]
  - Intentional self-injury [Unknown]

NARRATIVE: CASE EVENT DATE: 20170118
